FAERS Safety Report 12762787 (Version 1)
Quarter: 2016Q3

REPORT INFORMATION
  Report Type: Spontaneous
  Country: US (occurrence: US)
  Receive Date: 20160920
  Receipt Date: 20160920
  Transmission Date: 20161109
  Serious: No
  Sender: FDA-Public Use
  Company Number: ALCN2016US006439

PATIENT
  Age: 74 Year
  Sex: Female

DRUGS (3)
  1. PREDNISOLON SANDOZ [Concomitant]
     Indication: MACULAR FIBROSIS
     Dosage: 1 GTT, BID
     Route: 047
     Dates: start: 201609, end: 201609
  2. NEVANAC [Suspect]
     Active Substance: NEPAFENAC
     Indication: MACULAR FIBROSIS
     Dosage: 2 GTT, BID
     Route: 047
     Dates: start: 201609, end: 201609
  3. SYSTANE (HYPROMELLOSE 2910 (4000 MPA.S)) [Concomitant]
     Active Substance: HYPROMELLOSE 2910 (4000 MPA.S)
     Indication: DRY EYE
     Dosage: 1 GTT, PRN
     Route: 047

REACTIONS (1)
  - Vision blurred [Recovered/Resolved]

NARRATIVE: CASE EVENT DATE: 201609
